FAERS Safety Report 7373147-8 (Version None)
Quarter: 2011Q1

REPORT INFORMATION
  Report Type: 
  Country: None (occurrence: None)
  Receive Date: 20110324
  Receipt Date: 20110323
  Transmission Date: 20110831
  Serious: Yes (Life-Threatening, Hospitalization)
  Sender: FDA-Public Use
  Company Number: US-PFIZER INC-2011054958

PATIENT
  Sex: Male
  Weight: 11.5 kg

DRUGS (1)
  1. SOMATROPIN [Suspect]
     Indication: PRADER-WILLI SYNDROME
     Dosage: 0.4 MG, 1X/DAY
     Route: 058
     Dates: start: 20100601, end: 20110223

REACTIONS (1)
  - RESPIRATORY SYNCYTIAL VIRUS INFECTION [None]
